FAERS Safety Report 20947703 (Version 1)
Quarter: 2022Q2

REPORT INFORMATION
  Report Type: Spontaneous
  Country: FR (occurrence: FR)
  Receive Date: 20220611
  Receipt Date: 20220611
  Transmission Date: 20220721
  Serious: Yes (Hospitalization)
  Sender: FDA-Public Use
  Company Number: None

PATIENT
  Age: 69 Year
  Sex: Female
  Weight: 79.2 kg

DRUGS (3)
  1. PEMETREXED [Suspect]
     Active Substance: PEMETREXED
     Indication: Lung adenocarcinoma stage IV
     Dosage: UNIT DOSE : 975 MG , FREQUENCY TIME : 1 TOTAL , DURATION : 182 DAYS
     Route: 042
     Dates: start: 20211021, end: 20220421
  2. KEYTRUDA [Suspect]
     Active Substance: PEMBROLIZUMAB
     Indication: Lung adenocarcinoma stage IV
     Dosage: UNIT DOSE : 200 MG , FREQUENCY TIME : 1 TOTAL , DURATION : 1 DAYS
     Route: 042
     Dates: start: 20220421, end: 20220421
  3. INNOHEP [Suspect]
     Active Substance: TINZAPARIN SODIUM
     Indication: Prophylaxis
     Dosage: 18,000 I.U. ANTI-XA/0.9 ML SOLUTION FOR INJECTION (S.C.) IN PRE-FILLED SYRINGE ,UNIT DOSE : 16000 I
     Route: 058
     Dates: start: 202109

REACTIONS (1)
  - Cerebellar haematoma [Recovering/Resolving]

NARRATIVE: CASE EVENT DATE: 20220508
